FAERS Safety Report 5898900-9 (Version None)
Quarter: 2008Q3

REPORT INFORMATION
  Report Type: 
  Country: None (occurrence: None)
  Receive Date: 20080925
  Receipt Date: 20080915
  Transmission Date: 20090109
  Serious: Yes (Hospitalization)
  Sender: FDA-Public Use
  Company Number: US-AVENTIS-200711946GDDC

PATIENT
  Age: 72 Year
  Sex: Male
  Weight: 80.9 kg

DRUGS (3)
  1. TAXOTERE [Suspect]
     Indication: HEAD AND NECK CANCER
     Route: 042
     Dates: start: 20070214, end: 20070214
  2. CODE UNBROKEN [Suspect]
     Indication: HEAD AND NECK CANCER
     Route: 048
     Dates: start: 20061122, end: 20070228
  3. GLIPIZIDE [Concomitant]
     Indication: DIABETES MELLITUS
     Dosage: ROUTE: GASTROSTOMY TUBE
     Route: 050

REACTIONS (18)
  - ANAEMIA [None]
  - ASTHENIA [None]
  - BLOOD IRON DECREASED [None]
  - DISEASE PROGRESSION [None]
  - EAR HAEMORRHAGE [None]
  - EPISTAXIS [None]
  - FALL [None]
  - HYPOALBUMINAEMIA [None]
  - HYPOKALAEMIA [None]
  - HYPONATRAEMIA [None]
  - HYPOTENSION [None]
  - HYPOVOLAEMIA [None]
  - HYPOXIA [None]
  - MUSCULAR WEAKNESS [None]
  - PERIORBITAL CELLULITIS [None]
  - PNEUMONIA [None]
  - PNEUMONIA ASPIRATION [None]
  - PRESYNCOPE [None]
